FAERS Safety Report 7235474 (Version 4)
Quarter: 2013Q2

REPORT INFORMATION
  Report Type: Spontaneous
  Country: US (occurrence: US)
  Receive Date: 20100101
  Receipt Date: 20130429
  Transmission Date: 20140414
  Serious: Yes (Hospitalization)
  Sender: FDA-Public Use
  Company Number: US-BIOGENIDEC-2009BI041060

PATIENT
  Age: 54 Year
  Sex: Male
  Weight: 71 kg

DRUGS (17)
  1. TYSABRI [Suspect]
     Indication: MULTIPLE SCLEROSIS
     Route: 042
     Dates: start: 20091002
  2. FRAGMIN [Concomitant]
     Indication: COAGULOPATHY
     Dosage: DOSE UNIT:17250
     Route: 058
     Dates: start: 200803
  3. DIOVAN [Concomitant]
     Indication: HYPERTENSION
  4. LEVOTHYROXINE [Concomitant]
     Indication: HYPOTHYROIDISM
     Dates: start: 1980
  5. BACLOFEN [Concomitant]
     Indication: MUSCLE SPASMS
     Dates: start: 200908
  6. VALIUM [Concomitant]
     Indication: ANXIETY
     Dates: start: 2008
  7. VALIUM [Concomitant]
     Indication: SLEEP DISORDER
     Dates: start: 2008
  8. FENTANYL PATCH [Concomitant]
     Indication: BREAKTHROUGH PAIN
  9. FENTANYL PATCH [Concomitant]
     Indication: BACK PAIN
  10. TEMAZEPAM [Concomitant]
     Indication: SLEEP DISORDER
  11. KLONOPIN [Concomitant]
     Indication: ANXIETY
  12. TRAZODONE [Concomitant]
     Indication: SLEEP DISORDER
  13. ASPIRIN [Concomitant]
     Indication: PRODUCT USED FOR UNKNOWN INDICATION
  14. METOPROLOL [Concomitant]
     Indication: HYPERTENSION
  15. BUPROPION [Concomitant]
     Indication: DEPRESSION
     Dates: start: 200907
  16. ATORVASTATIN [Concomitant]
     Indication: HYPERCHOLESTEROLAEMIA
     Dates: start: 2002
  17. VICODIN [Concomitant]
     Indication: NEPHROLITHIASIS
     Dates: start: 2000

REACTIONS (7)
  - Coronary artery disease [Recovered/Resolved]
  - Renal failure [Unknown]
  - Oral fungal infection [Not Recovered/Not Resolved]
  - Bradycardia [Unknown]
  - Muscle spasms [Not Recovered/Not Resolved]
  - Burning sensation [Not Recovered/Not Resolved]
  - Hypercoagulation [Not Recovered/Not Resolved]
